FAERS Safety Report 19087472 (Version 1)
Quarter: 2021Q2

REPORT INFORMATION
  Report Type: Spontaneous
  Country: TR (occurrence: TR)
  Receive Date: 20210402
  Receipt Date: 20210402
  Transmission Date: 20210717
  Serious: Yes (Other)
  Sender: FDA-Public Use
  Company Number: TR-NOVOPROD-799206

PATIENT
  Sex: Male
  Weight: 4.24 kg

DRUGS (3)
  1. LEVEMIR [Suspect]
     Active Substance: INSULIN DETEMIR
     Indication: GESTATIONAL DIABETES
     Dosage: 8 IU
     Route: 064
     Dates: start: 20200603, end: 20210325
  2. LEVOTRON [Concomitant]
     Dosage: 175 MG FOR 2 DAYS WEEKLY
     Route: 065
  3. LEVOTRON [Concomitant]
     Indication: THYROID DISORDER
     Dosage: 200 ML FOR 5 DAYS
     Route: 065

REACTIONS (2)
  - Cardiac septal defect [Not Recovered/Not Resolved]
  - Foetal exposure during pregnancy [Recovered/Resolved]

NARRATIVE: CASE EVENT DATE: 20200603
